FAERS Safety Report 7355890-X (Version None)
Quarter: 2011Q1

REPORT INFORMATION
  Report Type: 
  Country: None (occurrence: None)
  Receive Date: 20110316
  Receipt Date: 20101105
  Transmission Date: 20110831
  Serious: No
  Sender: FDA-Public Use
  Company Number: US-BAYER-201023544BCC

PATIENT
  Sex: Female

DRUGS (2)
  1. VITAMINS NOS [Concomitant]
  2. ALEVE [Suspect]
     Indication: PRODUCT USED FOR UNKNOWN INDICATION
     Dosage: COUNT SIZE 50S
     Route: 048

REACTIONS (1)
  - FOREIGN BODY [None]
